FAERS Safety Report 17299773 (Version 1)
Quarter: 2020Q1

REPORT INFORMATION
  Report Type: Spontaneous
  Country: US (occurrence: US)
  Receive Date: 20200121
  Receipt Date: 20200121
  Transmission Date: 20200409
  Serious: Yes (Other)
  Sender: FDA-Public Use
  Company Number: None

PATIENT
  Age: 51 Year
  Sex: Female
  Weight: 116.1 kg

DRUGS (1)
  1. GLATIRAMER [Suspect]
     Active Substance: GLATIRAMER
     Indication: MULTIPLE SCLEROSIS
     Dosage: ?          OTHER FREQUENCY:THREE TIMES/WEEK;?
     Route: 058
     Dates: start: 20200108, end: 20200117

REACTIONS (4)
  - Chills [None]
  - Flushing [None]
  - Tremor [None]
  - Pain [None]

NARRATIVE: CASE EVENT DATE: 20200117
